FAERS Safety Report 8591926-6 (Version None)
Quarter: 2012Q3

REPORT INFORMATION
  Report Type: 
  Country: None (occurrence: None)
  Receive Date: 20120814
  Receipt Date: 20120809
  Transmission Date: 20120928
  Serious: Yes (Other)
  Sender: FDA-Public Use
  Company Number: CA-GENZYME-FLUD-1001535

PATIENT
  Sex: Male

DRUGS (2)
  1. FLUDARA [Suspect]
     Dosage: 60 MG, FOR 3 DAYS
     Route: 048
     Dates: start: 20120728, end: 20120730
  2. FLUDARA [Suspect]
     Indication: PRODUCT USED FOR UNKNOWN INDICATION
     Dosage: 60 MG, FOR 3 DAYS
     Route: 048
     Dates: start: 20120601, end: 20120601

REACTIONS (1)
  - TROPONIN INCREASED [None]
